FAERS Safety Report 9299453 (Version 2)
Quarter: 2013Q3

REPORT INFORMATION
  Report Type: Spontaneous
  Country: US (occurrence: US)
  Receive Date: 20130521
  Receipt Date: 20130902
  Transmission Date: 20140515
  Serious: Yes (Other)
  Sender: FDA-Public Use
  Company Number: US-ROCHE-1102733

PATIENT
  Age: 19 Year
  Sex: Male
  Weight: 65.83 kg

DRUGS (2)
  1. ACCUTANE [Suspect]
     Indication: ACNE
     Route: 048
     Dates: start: 199705, end: 200110
  2. AMNESTEEM [Suspect]
     Indication: ACNE
     Route: 065
     Dates: start: 200301, end: 200304

REACTIONS (7)
  - Crohn^s disease [Unknown]
  - Inflammatory bowel disease [Unknown]
  - Emotional distress [Not Recovered/Not Resolved]
  - Large intestine polyp [Unknown]
  - Gastritis erosive [Unknown]
  - Oesophagitis [Unknown]
  - Dry skin [Unknown]
